FAERS Safety Report 7570147-X (Version None)
Quarter: 2011Q2

REPORT INFORMATION
  Report Type: 
  Country: None (occurrence: None)
  Receive Date: 20110624
  Receipt Date: 20110613
  Transmission Date: 20111010
  Serious: Yes (Other)
  Sender: FDA-Public Use
  Company Number: GB-BRISTOL-MYERS SQUIBB COMPANY-15849813

PATIENT

DRUGS (3)
  1. TREOSULFAN [Suspect]
     Indication: OMENN SYNDROME
     Dosage: 1 DF=42G/M2 IN 3 DIVIDED DOSES ON 3 CONSECUTIVE DAYS
  2. CYCLOPHOSPHAMIDE [Suspect]
     Indication: OMENN SYNDROME
  3. CAMPATH [Suspect]
     Indication: OMENN SYNDROME
     Dosage: 1 DF= 0.3 TO 1.0 MG/KG

REACTIONS (1)
  - CONVULSION [None]
